FAERS Safety Report 9241976 (Version 2)
Quarter: 2013Q2

REPORT INFORMATION
  Report Type: Spontaneous
  Country: KR (occurrence: KR)
  Receive Date: 20130419
  Receipt Date: 20130528
  Transmission Date: 20140414
  Serious: Yes (Hospitalization)
  Sender: FDA-Public Use
  Company Number: KR-NAPPMUNDI-GBR-2013-0013697

PATIENT
  Age: 59 Year
  Sex: Male

DRUGS (5)
  1. NORSPAN PATCH [Suspect]
     Indication: PAIN
     Dosage: 2.5 MG, Q1H
     Route: 062
     Dates: start: 20130401, end: 20130401
  2. NORSPAN PATCH [Suspect]
     Dosage: 5 MCG, Q1H
     Route: 062
     Dates: start: 20130330, end: 20130331
  3. ZOLPIDEM TARTRATE [Concomitant]
     Dosage: UNK
     Dates: start: 20130325
  4. PREGABALIN [Concomitant]
     Dosage: UNK
     Dates: start: 20130330, end: 20130401
  5. GABAPENTIN [Concomitant]
     Dosage: UNK
     Dates: start: 20130402

REACTIONS (2)
  - Hypersensitivity [Recovering/Resolving]
  - Wrong technique in drug usage process [Unknown]
